FAERS Safety Report 8341387-7 (Version None)
Quarter: 2012Q2

REPORT INFORMATION
  Report Type: 
  Country: None (occurrence: None)
  Receive Date: 20120507
  Receipt Date: 20091207
  Transmission Date: 20120825
  Serious: Yes (Other)
  Sender: FDA-Public Use
  Company Number: US-TEVA-2009029503

PATIENT
  Sex: Female

DRUGS (2)
  1. ALLOPURINOL [Concomitant]
     Dates: start: 20091101
  2. TREANDA [Suspect]
     Indication: CHRONIC LYMPHOCYTIC LEUKAEMIA
     Dosage: 100 MG/VIAL
     Route: 042
     Dates: start: 20091101

REACTIONS (2)
  - RASH [None]
  - PYREXIA [None]
